FAERS Safety Report 20518030 (Version 2)
Quarter: 2022Q3

REPORT INFORMATION
  Report Type: Spontaneous
  Country: US (occurrence: None)
  Receive Date: 20220225
  Receipt Date: 20220819
  Transmission Date: 20221027
  Serious: Yes (Other)
  Sender: FDA-Public Use
  Company Number: 2022A079640

PATIENT
  Age: 26826 Day
  Sex: Female
  Weight: 79.8 kg

DRUGS (75)
  1. NEXIUM [Suspect]
     Active Substance: ESOMEPRAZOLE MAGNESIUM
     Indication: Gastrooesophageal reflux disease
     Route: 048
     Dates: start: 1997, end: 2020
  2. NEXIUM [Suspect]
     Active Substance: ESOMEPRAZOLE MAGNESIUM
     Indication: Gastrooesophageal reflux disease
     Dosage: GENERIC
     Route: 065
     Dates: start: 2016, end: 2020
  3. NEXIUM [Suspect]
     Active Substance: ESOMEPRAZOLE MAGNESIUM
     Indication: Gastrooesophageal reflux disease
     Route: 048
     Dates: start: 2001, end: 2020
  4. PRILOSEC [Suspect]
     Active Substance: OMEPRAZOLE MAGNESIUM
     Indication: Gastrooesophageal reflux disease
     Route: 048
     Dates: start: 1997, end: 2020
  5. PRILOSEC [Suspect]
     Active Substance: OMEPRAZOLE MAGNESIUM
     Indication: Gastrooesophageal reflux disease
     Dosage: GENERIC
     Route: 065
     Dates: start: 2009, end: 2020
  6. DEXILANT [Suspect]
     Active Substance: DEXLANSOPRAZOLE
     Indication: Gastrooesophageal reflux disease
     Route: 065
     Dates: start: 1997, end: 2020
  7. DEXILANT [Suspect]
     Active Substance: DEXLANSOPRAZOLE
     Indication: Gastrooesophageal reflux disease
     Route: 065
     Dates: start: 2009, end: 2020
  8. PREVACID [Suspect]
     Active Substance: LANSOPRAZOLE
     Indication: Gastrooesophageal reflux disease
     Route: 065
     Dates: start: 1997, end: 2020
  9. PROTONIX [Suspect]
     Active Substance: PANTOPRAZOLE SODIUM
     Indication: Gastrooesophageal reflux disease
     Route: 065
     Dates: start: 1997, end: 2020
  10. PROTONIX [Suspect]
     Active Substance: PANTOPRAZOLE SODIUM
     Indication: Gastrooesophageal reflux disease
     Dosage: GENERIC
     Route: 065
  11. PROTONIX [Suspect]
     Active Substance: PANTOPRAZOLE SODIUM
     Indication: Gastrooesophageal reflux disease
     Route: 065
     Dates: start: 2000, end: 2020
  12. PROTONIX [Suspect]
     Active Substance: PANTOPRAZOLE SODIUM
     Indication: Gastrooesophageal reflux disease
     Dosage: GENERIC
     Route: 065
     Dates: start: 2017
  13. COLECOXIB [Concomitant]
     Indication: Analgesic therapy
     Dates: start: 2020
  14. CELEBREX [Concomitant]
     Active Substance: CELECOXIB
     Indication: Analgesic therapy
     Dates: start: 2001, end: 2020
  15. DICLOFENAC [Concomitant]
     Active Substance: DICLOFENAC
     Indication: Analgesic therapy
     Dates: start: 2015, end: 2019
  16. VOLTAREN [Concomitant]
     Active Substance: DICLOFENAC SODIUM
     Indication: Analgesic therapy
     Dates: start: 2016
  17. BUPIVACAINE HYDROCHLORIDE/LIDOCAINE HYDROCHLORIDE/KETOROLAC TROMETHAMI [Concomitant]
     Indication: Analgesic therapy
     Dates: start: 2018
  18. MELOXICAM [Concomitant]
     Active Substance: MELOXICAM
     Indication: Analgesic therapy
     Dates: start: 2012
  19. NAPROXEN [Concomitant]
     Active Substance: NAPROXEN
     Indication: Analgesic therapy
     Dates: start: 2009
  20. TRAMADOL [Concomitant]
     Active Substance: TRAMADOL
     Indication: Analgesic therapy
     Dates: start: 2013, end: 2021
  21. AZITHROMYCIN [Concomitant]
     Active Substance: AZITHROMYCIN
     Indication: Infection
     Dates: start: 2020
  22. CEPHALEXIN [Concomitant]
     Active Substance: CEPHALEXIN
     Indication: Infection
     Dates: start: 2008, end: 2018
  23. CIPROFLOXACIN [Concomitant]
     Active Substance: CIPROFLOXACIN
     Indication: Infection
     Dates: start: 2013
  24. DOXYCYCLINE [Concomitant]
     Active Substance: DOXYCYCLINE
     Indication: Infection
     Dates: start: 2018
  25. LEVOFLOXACIN [Concomitant]
     Active Substance: LEVOFLOXACIN
     Indication: Infection
     Dates: start: 2014
  26. TRIMETHOPRIM [Concomitant]
     Active Substance: TRIMETHOPRIM
     Indication: Infection
     Dates: start: 2016
  27. BACTRIM [Concomitant]
     Active Substance: SULFAMETHOXAZOLE\TRIMETHOPRIM
     Indication: Infection
     Dates: start: 2004
  28. LOVASTATIN [Concomitant]
     Active Substance: LOVASTATIN
     Indication: Blood cholesterol increased
     Dates: start: 2010, end: 2012
  29. ROSUVASTATIN [Concomitant]
     Active Substance: ROSUVASTATIN
     Indication: Blood cholesterol increased
     Dates: start: 2018, end: 2020
  30. CRESTOR [Concomitant]
     Active Substance: ROSUVASTATIN CALCIUM
     Indication: Blood cholesterol increased
     Dates: start: 2020
  31. SIMVASTATIN [Concomitant]
     Active Substance: SIMVASTATIN
     Indication: Blood cholesterol increased
     Dates: start: 2012, end: 2018
  32. ZOCOR [Concomitant]
     Active Substance: SIMVASTATIN
     Indication: Blood cholesterol increased
     Dates: start: 2018
  33. CYCLOSPORINE [Concomitant]
     Active Substance: CYCLOSPORINE
     Indication: Eye drop instillation
     Dates: start: 2018, end: 2020
  34. IBUPROFEN [Concomitant]
     Active Substance: IBUPROFEN
     Indication: Analgesic therapy
     Dates: start: 2012
  35. VITAMIN C [Concomitant]
     Active Substance: ASCORBIC ACID
     Dates: start: 2012
  36. VITAMIN D [Concomitant]
     Active Substance: VITAMIN D NOS
     Dates: start: 2012
  37. VITAMIN A [Concomitant]
     Active Substance: VITAMIN A
     Dates: start: 2012
  38. PROBIOTICS NOS [Concomitant]
     Active Substance: PROBIOTICS NOS
     Indication: Energy increased
     Dates: start: 2012
  39. HERBALS\TURMERIC [Concomitant]
     Active Substance: HERBALS\TURMERIC
     Indication: Energy increased
     Dates: start: 2012
  40. TRIPLE OMEGA [Concomitant]
     Indication: Energy increased
     Dates: start: 2012
  41. TAGAMET [Concomitant]
     Active Substance: CIMETIDINE
  42. PEPCID [Concomitant]
     Active Substance: FAMOTIDINE
  43. ZANTAC [Concomitant]
     Active Substance: RANITIDINE HYDROCHLORIDE
  44. TUMS [Concomitant]
     Active Substance: CALCIUM CARBONATE
     Dates: start: 1992, end: 1997
  45. ROLAIDS [Concomitant]
     Active Substance: CALCIUM CARBONATE\MAGNESIUM HYDROXIDE
     Dates: start: 1992, end: 1997
  46. MAALOX ANTACID [Concomitant]
     Active Substance: ALUMINUM HYDROXIDE\DIMETHICONE\MAGNESIUM HYDROXIDE
     Dates: start: 1992, end: 1997
  47. MYLANTA [Concomitant]
     Active Substance: ALUMINUM HYDROXIDE\DIMETHICONE\MAGNESIUM HYDROXIDE
     Dates: start: 1992, end: 1997
  48. CHLORHEXIDINE [Concomitant]
     Active Substance: CHLORHEXIDINE
  49. ALAVERT ALLERGY [Concomitant]
     Active Substance: LORATADINE
  50. AMOXICILLIN [Concomitant]
     Active Substance: AMOXICILLIN
  51. PROMETHAZINE [Concomitant]
     Active Substance: PROMETHAZINE HYDROCHLORIDE
  52. METANX [Concomitant]
     Active Substance: LEVOMEFOLATE CALCIUM\METHYLCOBALAMIN\PYRIDOXAL PHOSPHATE ANHYDROUS
  53. ELESTAT [Concomitant]
     Active Substance: EPINASTINE HYDROCHLORIDE
  54. ZONISAMIDE [Concomitant]
     Active Substance: ZONISAMIDE
  55. LUXIQ [Concomitant]
     Active Substance: BETAMETHASONE VALERATE
  56. METROGEL [Concomitant]
     Active Substance: METRONIDAZOLE
  57. EXTINA [Concomitant]
     Active Substance: KETOCONAZOLE
  58. METHYLPREDNISOLONE [Concomitant]
     Active Substance: METHYLPREDNISOLONE
  59. SINGULAIR [Concomitant]
     Active Substance: MONTELUKAST SODIUM
  60. BENZONATATE [Concomitant]
     Active Substance: BENZONATATE
  61. SKELAXIN [Concomitant]
     Active Substance: METAXALONE
  62. ALLEGRA [Concomitant]
     Active Substance: FEXOFENADINE HYDROCHLORIDE
  63. PROAIR HFA [Concomitant]
     Active Substance: ALBUTEROL SULFATE
  64. GABAPENTIN [Concomitant]
     Active Substance: GABAPENTIN
  65. OXYCODONE [Concomitant]
     Active Substance: OXYCODONE
  66. ZOSTAVAX [Concomitant]
     Active Substance: VARICELLA-ZOSTER VIRUS STRAIN OKA/MERCK LIVE ANTIGEN
  67. AZELASTINE [Concomitant]
     Active Substance: AZELASTINE
  68. AMITRIPTYLINE [Concomitant]
     Active Substance: AMITRIPTYLINE
  69. DULOXETINE [Concomitant]
     Active Substance: DULOXETINE
  70. COLCRYS [Concomitant]
     Active Substance: COLCHICINE
  71. VESICARE [Concomitant]
     Active Substance: SOLIFENACIN SUCCINATE
  72. OXYBUTYNIN [Concomitant]
     Active Substance: OXYBUTYNIN
  73. TOPROL XL [Concomitant]
     Active Substance: METOPROLOL SUCCINATE
  74. RESTASIS [Concomitant]
     Active Substance: CYCLOSPORINE
  75. ACIPHEX [Concomitant]
     Active Substance: RABEPRAZOLE SODIUM

REACTIONS (1)
  - Chronic kidney disease [Not Recovered/Not Resolved]

NARRATIVE: CASE EVENT DATE: 20171101
